FAERS Safety Report 15137053 (Version 1)
Quarter: 2018Q3

REPORT INFORMATION
  Report Type: Spontaneous
  Country: US (occurrence: US)
  Receive Date: 20180712
  Receipt Date: 20180712
  Transmission Date: 20181010
  Serious: Yes (Other)
  Sender: FDA-Public Use
  Company Number: US-FOUNDATIONCONSUMERHC-2018-US-008699

PATIENT
  Age: 29 Year
  Sex: Female
  Weight: 75.75 kg

DRUGS (2)
  1. MULTIVITAMIN [Concomitant]
     Active Substance: VITAMINS
  2. PLAN B ONE?STEP [Suspect]
     Active Substance: LEVONORGESTREL
     Dosage: 1.5 MG
     Route: 048
     Dates: start: 20180506, end: 20180506

REACTIONS (5)
  - Vaginal haemorrhage [Recovered/Resolved]
  - Drug ineffective [Unknown]
  - Vaginal discharge [Recovered/Resolved]
  - Vaginal haemorrhage [Recovered/Resolved]
  - Pregnancy after post coital contraception [Not Recovered/Not Resolved]

NARRATIVE: CASE EVENT DATE: 20180506
